FAERS Safety Report 22963383 (Version 7)
Quarter: 2024Q2

REPORT INFORMATION
  Report Type: Spontaneous
  Country: US (occurrence: US)
  Receive Date: 20230920
  Receipt Date: 20240417
  Transmission Date: 20240716
  Serious: No
  Sender: FDA-Public Use
  Company Number: US-Blueprint Medicines Corporation-SP-US-2023-001423

PATIENT
  Sex: Male

DRUGS (6)
  1. AYVAKIT [Suspect]
     Active Substance: AVAPRITINIB
     Indication: Haematopoietic neoplasm
     Route: 048
     Dates: start: 20230715
  2. AYVAKIT [Suspect]
     Active Substance: AVAPRITINIB
     Indication: Indolent systemic mastocytosis
     Route: 048
     Dates: start: 20230715
  3. AYVAKIT [Suspect]
     Active Substance: AVAPRITINIB
     Indication: Systemic mastocytosis
     Route: 048
     Dates: start: 20230715
  4. AYVAKIT [Suspect]
     Active Substance: AVAPRITINIB
     Route: 065
  5. AYVAKIT [Suspect]
     Active Substance: AVAPRITINIB
     Dosage: ON TUESDAYS, THURSDAYS, SATURDAYS, AND SUNDAYS
     Route: 065
  6. AYVAKIT [Suspect]
     Active Substance: AVAPRITINIB
     Dosage: MONDAYS, WEDNESDAYS, AND THURSDAYS
     Route: 065

REACTIONS (11)
  - Sinus congestion [Recovered/Resolved]
  - Fatigue [Not Recovered/Not Resolved]
  - Alopecia [Not Recovered/Not Resolved]
  - Diarrhoea [Recovering/Resolving]
  - Adverse drug reaction [Recovered/Resolved]
  - Lacrimation increased [Not Recovered/Not Resolved]
  - Dyspepsia [Not Recovered/Not Resolved]
  - Swelling face [Recovered/Resolved]
  - Periorbital swelling [Not Recovered/Not Resolved]
  - Drug intolerance [Recovered/Resolved]
  - Tryptase increased [Recovered/Resolved]
